FAERS Safety Report 25074508 (Version 1)
Quarter: 2025Q1

REPORT INFORMATION
  Report Type: Spontaneous
  Country: US (occurrence: US)
  Receive Date: 20250313
  Receipt Date: 20250313
  Transmission Date: 20250409
  Serious: Yes (Hospitalization)
  Sender: MYLAN
  Company Number: US-MYLANLABS-2025M1020049

PATIENT
  Age: 42 Year
  Sex: Male

DRUGS (12)
  1. DEXAMETHASONE [Suspect]
     Active Substance: DEXAMETHASONE
     Indication: Warm autoimmune haemolytic anaemia
     Dosage: 40 MILLIGRAM, QD
     Dates: start: 2021
  2. DEXAMETHASONE [Suspect]
     Active Substance: DEXAMETHASONE
     Indication: Haemophagocytic lymphohistiocytosis
  3. METHYLPREDNISOLONE [Suspect]
     Active Substance: METHYLPREDNISOLONE
     Indication: Warm autoimmune haemolytic anaemia
  4. METHYLPREDNISOLONE [Suspect]
     Active Substance: METHYLPREDNISOLONE
     Indication: Haemophagocytic lymphohistiocytosis
  5. IMMUNE GLOBULIN NOS [Suspect]
     Active Substance: IMMUNE GLOBULIN NOS
     Indication: Warm autoimmune haemolytic anaemia
  6. IMMUNE GLOBULIN NOS [Suspect]
     Active Substance: IMMUNE GLOBULIN NOS
     Indication: Haemophagocytic lymphohistiocytosis
  7. RITUXIMAB [Suspect]
     Active Substance: RITUXIMAB
     Indication: Warm autoimmune haemolytic anaemia
  8. RITUXIMAB [Suspect]
     Active Substance: RITUXIMAB
     Indication: Haemophagocytic lymphohistiocytosis
  9. ANAKINRA [Suspect]
     Active Substance: ANAKINRA
     Indication: Warm autoimmune haemolytic anaemia
  10. ANAKINRA [Suspect]
     Active Substance: ANAKINRA
     Indication: Haemophagocytic lymphohistiocytosis
  11. IVERMECTIN [Concomitant]
     Active Substance: IVERMECTIN
     Indication: COVID-19
  12. HEMOPURE [Concomitant]
     Active Substance: HEMOGLOBIN GLUTAMER-250 (BOVINE)
     Indication: Warm autoimmune haemolytic anaemia
     Dates: start: 2021, end: 2021

REACTIONS (1)
  - Drug ineffective [Unknown]

NARRATIVE: CASE EVENT DATE: 20210101
